FAERS Safety Report 4643813-3 (Version None)
Quarter: 2005Q2

REPORT INFORMATION
  Report Type: 
  Country: None (occurrence: None)
  Receive Date: 20050422
  Receipt Date: 20050422
  Transmission Date: 20051028
  Serious: Yes (Other)
  Sender: FDA-Public Use
  Company Number: None

PATIENT
  Age: 71 Year
  Sex: Male
  Weight: 83.5 kg

DRUGS (18)
  1. NEOMYCIN [Suspect]
  2. FLUOCINOLONE ACETONIDE [Concomitant]
  3. CITALOPRAM HYDROBROMIDE [Concomitant]
  4. LORAZEPAM [Concomitant]
  5. METOPROLOL TARTRATE [Concomitant]
  6. SIMETHICONE [Concomitant]
  7. FELODIPINE [Concomitant]
  8. PREDNISONE TAB [Concomitant]
  9. CALCIUM / VITAMIN D [Concomitant]
  10. DILANTIN [Concomitant]
  11. OXYCODONE HCL [Concomitant]
  12. DOCUSATE NA [Concomitant]
  13. FOSINOPRIL NA [Concomitant]
  14. TRIAMCINOLONE ACETONIDE [Concomitant]
  15. FUROSEMIDE [Concomitant]
  16. LOPERAMIDE HCL [Concomitant]
  17. CLOBETASOL PROPIONATE [Concomitant]
  18. SENNOSIDES [Concomitant]

REACTIONS (1)
  - RASH [None]
